FAERS Safety Report 8237566-X (Version None)
Quarter: 2012Q1

REPORT INFORMATION
  Report Type: 
  Country: None (occurrence: None)
  Receive Date: 20120309
  Receipt Date: 20110216
  Transmission Date: 20120608
  Serious: Yes (Other)
  Sender: FDA-Public Use
  Company Number: PHHY2011US05961

PATIENT
  Age: 36 Year
  Sex: Female

DRUGS (1)
  1. EXTAVIA [Suspect]
     Indication: MULTIPLE SCLEROSIS
     Dosage: 0.125 MG, QOD, SUBCUTANEOUS
     Route: 058
     Dates: start: 20110120

REACTIONS (7)
  - CONVULSION [None]
  - SKIN DISCOLOURATION [None]
  - DIZZINESS [None]
  - TONGUE BITING [None]
  - PAIN IN EXTREMITY [None]
  - SOMNOLENCE [None]
  - ANXIETY [None]
